FAERS Safety Report 8902616 (Version 1)
Quarter: 2012Q4

REPORT INFORMATION
  Report Type: 
  Country: US (occurrence: US)
  Receive Date: 20121112
  Receipt Date: 20121112
  Transmission Date: 20130627
  Serious: Yes (Other)
  Sender: FDA-Public Use
  Company Number: US-PFIZER INC-2012281406

PATIENT
  Age: 66 Year
  Sex: Male
  Weight: 68.03 kg

DRUGS (4)
  1. LIPITOR [Suspect]
     Indication: HIGH CHOLESTEROL
     Dosage: 40 mg, daily
     Route: 048
  2. DOXAZOSIN [Concomitant]
     Dosage: 4 mg, daily
  3. ATENOLOL [Concomitant]
     Indication: BLOOD PRESSURE HIGH
     Dosage: 50 mg, daily
  4. LISINOPRIL [Concomitant]
     Dosage: 20 mg, daily

REACTIONS (1)
  - Anosmia [Not Recovered/Not Resolved]
